FAERS Safety Report 23371307 (Version 3)
Quarter: 2024Q1

REPORT INFORMATION
  Report Type: Report from Study
  Country: CN (occurrence: CN)
  Receive Date: 20240105
  Receipt Date: 20240117
  Transmission Date: 20240409
  Serious: No
  Sender: FDA-Public Use
  Company Number: CN-PFIZER INC-PV202400000042

PATIENT
  Age: 95 Year
  Sex: Male

DRUGS (22)
  1. NIRMATRELVIR\RITONAVIR [Suspect]
     Active Substance: NIRMATRELVIR\RITONAVIR
     Indication: COVID-19 treatment
     Dosage: [NIRMATRELVIR 300 MG]/[RITONAVIR 100 MG]; 2X/DAY
     Route: 048
     Dates: start: 20220522, end: 20220527
  2. NIRMATRELVIR\RITONAVIR [Suspect]
     Active Substance: NIRMATRELVIR\RITONAVIR
     Dosage: [NIRMATRELVIR 300 MG]/[RITONAVIR 100 MG]; 2X/DAY
     Route: 048
     Dates: start: 20220528, end: 20220601
  3. INTERFERON ALFA-2B [Concomitant]
     Active Substance: INTERFERON ALFA-2B
     Indication: Antiviral treatment
     Dosage: RECOMBINANT HUMAN INTERFERON A2B SPRAY
     Route: 055
     Dates: start: 20220521, end: 20220605
  4. INTERFERON ALFA-2B [Concomitant]
     Active Substance: INTERFERON ALFA-2B
     Dosage: RECOMBINANT HUMAN INTERFERON A2B SPRAY
     Route: 055
     Dates: start: 20220603
  5. THYMALFASIN [Concomitant]
     Active Substance: THYMALFASIN
     Indication: Immune system disorder
     Dosage: UNK
     Route: 058
     Dates: start: 20220521, end: 20220601
  6. ENOXAPARIN SODIUM [Concomitant]
     Active Substance: ENOXAPARIN SODIUM
     Indication: Anticoagulant therapy
     Dosage: UNK
     Route: 058
     Dates: start: 20220522, end: 20220605
  7. CEFTRIAXONE SODIUM [Concomitant]
     Active Substance: CEFTRIAXONE SODIUM
     Indication: Anti-infective therapy
     Dosage: UNK
     Route: 042
     Dates: start: 20220522, end: 20220524
  8. BISACODYL [Concomitant]
     Active Substance: BISACODYL
     Indication: Gastrointestinal disorder
     Dosage: ENTERIC-COATED TABLETS
     Route: 048
     Dates: start: 20220524, end: 20220524
  9. PIPERAZINE BISFERULATE [Concomitant]
     Active Substance: PIPERAZINE BISFERULATE
     Indication: Haematuria
     Dosage: UNK
     Route: 048
     Dates: start: 20220524, end: 20220603
  10. PIPERAZINE BISFERULATE [Concomitant]
     Active Substance: PIPERAZINE BISFERULATE
     Indication: Nephritis
  11. COATED ALDEHYDE OXYSTARCH [Concomitant]
     Indication: Renal impairment
     Dosage: UNK
     Route: 048
     Dates: start: 20220524, end: 20220603
  12. LEUCOGEN [Concomitant]
     Active Substance: LEUCOGEN
     Indication: White blood cell disorder
     Dosage: UNK
     Route: 048
     Dates: start: 20220525, end: 20220605
  13. HUMAN IMMUNOGLOBULIN G [Concomitant]
     Active Substance: HUMAN IMMUNOGLOBULIN G
     Indication: Immune system disorder
     Dosage: UNK
     Route: 042
     Dates: start: 20220525, end: 20220528
  14. HERBALS [Concomitant]
     Active Substance: HERBALS
     Indication: Antiviral treatment
     Dosage: UNK
     Route: 042
     Dates: start: 20220527, end: 20220601
  15. FUROSEMIDE [Concomitant]
     Active Substance: FUROSEMIDE
     Indication: Polyuria
     Dosage: UNK
     Route: 042
     Dates: start: 20220527, end: 20220603
  16. COMPOUND ALPHA KETOACID [Concomitant]
     Indication: Renal impairment
     Dosage: UNK
     Route: 048
     Dates: start: 20220527, end: 20220603
  17. ERYTHROPOIETIN [Concomitant]
     Active Substance: ERYTHROPOIETIN
     Indication: Blood disorder
     Dosage: UNK
     Route: 058
     Dates: start: 20220527, end: 20220605
  18. FERROUS SUCCINATE [Concomitant]
     Active Substance: FERROUS SUCCINATE
     Indication: Mineral supplementation
     Dosage: SUSTAINED RELEASTABLETS
     Route: 048
     Dates: start: 20220528
  19. POTASSIUM CHLORIDE [Concomitant]
     Active Substance: POTASSIUM CHLORIDE
     Indication: Mineral supplementation
     Dosage: UNK
     Route: 048
     Dates: start: 20220529
  20. HERBALS [Concomitant]
     Active Substance: HERBALS
     Indication: Ill-defined disorder
     Dosage: UNK
     Route: 048
     Dates: start: 20220603
  21. JIAN PI SHENG XUE [Concomitant]
     Indication: Blood disorder
     Dosage: JIANPI SHENGXUE KELI
     Route: 048
     Dates: start: 20220604
  22. JIAN PI SHENG XUE [Concomitant]
     Indication: Spleen disorder

REACTIONS (1)
  - Overdose [Unknown]
